FAERS Safety Report 7839066-5 (Version None)
Quarter: 2011Q4

REPORT INFORMATION
  Report Type: 
  Country: None (occurrence: None)
  Receive Date: 20111024
  Receipt Date: 20110929
  Transmission Date: 20120403
  Serious: Yes (Hospitalization, Disabling, Other)
  Sender: FDA-Public Use
  Company Number: PHHY2009DE54892

PATIENT
  Sex: Female
  Weight: 81 kg

DRUGS (11)
  1. FEMARA [Suspect]
     Indication: BREAST CANCER
     Dosage: 2.5 MG, DAILY
     Route: 048
     Dates: start: 20091103, end: 20091209
  2. EPIRUBICIN [Suspect]
     Dosage: UNK
     Dates: start: 20090714
  3. DOCETAXEL [Suspect]
     Dosage: UNK
     Dates: end: 20090915
  4. CYCLOPHOSPHAMIDE [Suspect]
     Dosage: UNK
     Dates: end: 20091001
  5. ASPIRIN [Concomitant]
     Indication: EMBOLISM
     Dosage: 100 MG, UNK
     Route: 048
     Dates: start: 20091211
  6. DOCETAXEL [Suspect]
     Dosage: UNK
     Dates: start: 20090825
  7. DOXYCYCLINE [Concomitant]
  8. DOCETAXEL [Suspect]
     Dosage: UNK
     Dates: start: 20090804
  9. DOCETAXEL [Suspect]
     Dosage: UNK
     Dates: end: 20091013
  10. FACTOR XIII (FIBRIN STABILISING FACTOR) [Concomitant]
     Dosage: UNK
     Dates: start: 20091211
  11. RADIATION [Concomitant]

REACTIONS (7)
  - OPTIC ATROPHY [None]
  - VISUAL EVOKED POTENTIALS ABNORMAL [None]
  - BLINDNESS [None]
  - PAPILLOEDEMA [None]
  - OPTIC ISCHAEMIC NEUROPATHY [None]
  - AMBLYOPIA STRABISMIC [None]
  - VISUAL ACUITY REDUCED [None]
